FAERS Safety Report 17617057 (Version 1)
Quarter: 2020Q2

REPORT INFORMATION
  Report Type: Spontaneous
  Country: DE (occurrence: DE)
  Receive Date: 20200402
  Receipt Date: 20200402
  Transmission Date: 20200713
  Serious: Yes (Hospitalization)
  Sender: FDA-Public Use
  Company Number: DE-EMD SERONO-9149901

PATIENT
  Age: 35 Year
  Sex: Female
  Weight: 55 kg

DRUGS (6)
  1. CLADRIBINE. [Suspect]
     Active Substance: CLADRIBINE
     Dosage: SECOND YEAR FIRST WEEK THERAPY
     Route: 048
     Dates: start: 20190528, end: 20190601
  2. CLADRIBINE. [Suspect]
     Active Substance: CLADRIBINE
     Dosage: SECOND YEAR SECOND WEEK THERAPY
     Route: 048
     Dates: start: 20190923, end: 20190924
  3. LEVETIRACETAM. [Concomitant]
     Active Substance: LEVETIRACETAM
     Indication: EPILEPSY
     Route: 048
     Dates: start: 20030708, end: 20030708
  4. CLADRIBINE. [Suspect]
     Active Substance: CLADRIBINE
     Indication: RELAPSING-REMITTING MULTIPLE SCLEROSIS
     Dosage: FIRST YEAR FIRST WEEK THERAPY.
     Route: 048
     Dates: start: 20180522, end: 20180526
  5. CLADRIBINE. [Suspect]
     Active Substance: CLADRIBINE
     Dosage: FIRST YEAR SECOND WEEK THERAPY.
     Route: 048
     Dates: start: 20180619, end: 20180623
  6. CITALOPRAM [Concomitant]
     Active Substance: CITALOPRAM HYDROBROMIDE
     Indication: DEPRESSION
     Route: 048
     Dates: start: 20030708

REACTIONS (1)
  - Multiple sclerosis relapse [Recovering/Resolving]
